FAERS Safety Report 5751712-9 (Version None)
Quarter: 2008Q2

REPORT INFORMATION
  Report Type: 
  Country: None (occurrence: None)
  Receive Date: 20080522
  Receipt Date: 20080507
  Transmission Date: 20081010
  Serious: Yes (Death, Hospitalization)
  Sender: FDA-Public Use
  Company Number: THYM-1000693

PATIENT
  Age: 50 Year
  Sex: Male
  Weight: 106 kg

DRUGS (25)
  1. THYMOGLOBULIN [Suspect]
     Indication: MYELODYSPLASTIC SYNDROME
     Dosage: 1, 2.5  MG/M2, ONCE, INTRAVENOUS
     Route: 042
     Dates: start: 20080315, end: 20080315
  2. THYMOGLOBULIN [Suspect]
     Indication: MYELODYSPLASTIC SYNDROME
     Dosage: 1, 2.5  MG/M2, ONCE, INTRAVENOUS
     Route: 042
     Dates: start: 20080316, end: 20080317
  3. CLOFARABINE (CLOFARABINE) [Suspect]
     Indication: MYELODYSPLASTIC SYNDROME
     Dosage: 40 MG/M2, QD, INTRAVENOUS
     Route: 042
     Dates: start: 20080313, end: 20080317
  4. CYTARABINE [Suspect]
     Indication: MYELODYSPLASTIC SYNDROME
     Dosage: 1 G/M2, QD, INTRAVENOUS
     Route: 042
     Dates: start: 20080313, end: 20080317
  5. AZITHROMYCIN [Concomitant]
  6. MEROPENEM (MEROPENEM) [Concomitant]
  7. PAXIL [Concomitant]
  8. COMPAZINE (PROCHLORPERAZINE MALEATE) [Concomitant]
  9. GANCICLOVIR [Concomitant]
  10. VALTREX [Concomitant]
  11. METOPROLOL TARTRATE [Concomitant]
  12. LASIX [Concomitant]
  13. DAPSONE [Concomitant]
  14. FLUCONAZOLE [Concomitant]
  15. TACROLIMUS [Concomitant]
  16. CIPROFLOXACIN (CIPROFLOXACIN LACTATE) [Concomitant]
  17. OXYCODONE (OXYCODONE, PARACETAMOL) [Concomitant]
  18. CARISOPRODOL [Concomitant]
  19. INSULIN (INSULIN HUMAN) [Concomitant]
  20. PEPCID (FAMOTIDINE, MAGNESIUM HYDROXYDE) [Concomitant]
  21. SOLU-MEDROL [Concomitant]
  22. AMICAR [Concomitant]
  23. PREDNISOLONE ACETATE [Concomitant]
  24. TESSALON [Concomitant]
  25. MICONAZOLE [Concomitant]

REACTIONS (8)
  - BRADYCARDIA [None]
  - CARDIO-RESPIRATORY ARREST [None]
  - DISEASE PROGRESSION [None]
  - HYPOTENSION [None]
  - MYELODYSPLASTIC SYNDROME [None]
  - PLEURAL EFFUSION [None]
  - PNEUMONIA PRIMARY ATYPICAL [None]
  - PULMONARY OEDEMA [None]
